FAERS Safety Report 13958034 (Version 1)
Quarter: 2017Q3

REPORT INFORMATION
  Report Type: Report from Study
  Country: AU (occurrence: AU)
  Receive Date: 20170912
  Receipt Date: 20170912
  Transmission Date: 20171128
  Serious: Yes (Death)
  Sender: FDA-Public Use
  Company Number: AU-VISTAPHARM, INC.-VER201709-000528

PATIENT
  Age: 39 Year
  Sex: Male

DRUGS (6)
  1. OXAZEPAM. [Suspect]
     Active Substance: OXAZEPAM
  2. TEMAZEPAM. [Suspect]
     Active Substance: TEMAZEPAM
  3. QUETIAPINE. [Suspect]
     Active Substance: QUETIAPINE
  4. DULOXETINE. [Suspect]
     Active Substance: DULOXETINE
     Indication: DEPRESSION
  5. MORPHINE [Suspect]
     Active Substance: MORPHINE
     Indication: PAIN
  6. DIAZEPAM. [Suspect]
     Active Substance: DIAZEPAM

REACTIONS (2)
  - Drug interaction [Fatal]
  - Toxicity to various agents [Fatal]
